FAERS Safety Report 21490417 (Version 1)
Quarter: 2022Q4

REPORT INFORMATION
  Report Type: Spontaneous
  Country: US (occurrence: None)
  Receive Date: 20221021
  Receipt Date: 20221021
  Transmission Date: 20230113
  Serious: No
  Sender: FDA-Public Use
  Company Number: US-SUPERNUS Pharmaceuticals, Inc.-SUP202207-002030

PATIENT
  Age: 7 Year
  Sex: Male

DRUGS (2)
  1. QELBREE [Suspect]
     Active Substance: VILOXAZINE HYDROCHLORIDE
     Indication: Attention deficit hyperactivity disorder
     Dates: start: 20220629, end: 20220701
  2. FOCALIN [Suspect]
     Active Substance: DEXMETHYLPHENIDATE HYDROCHLORIDE
     Indication: Attention deficit hyperactivity disorder
     Dosage: NOT PROVIDED

REACTIONS (2)
  - Anxiety [Unknown]
  - Insomnia [Unknown]

NARRATIVE: CASE EVENT DATE: 20220629
